FAERS Safety Report 16438525 (Version 1)
Quarter: 2019Q2

REPORT INFORMATION
  Report Type: Spontaneous
  Country: BG (occurrence: BG)
  Receive Date: 20190617
  Receipt Date: 20190617
  Transmission Date: 20190711
  Serious: Yes (Death)
  Sender: FDA-Public Use
  Company Number: BG-ROCHE-2334267

PATIENT
  Age: 60 Year
  Sex: Male
  Weight: 66 kg

DRUGS (3)
  1. ZOLEDRONIC [Concomitant]
     Active Substance: ZOLEDRONIC ACID
     Indication: METASTASES TO BONE
     Dosage: 4 MG/5 ML
     Route: 065
     Dates: start: 20190101
  2. TECENTRIQ [Suspect]
     Active Substance: ATEZOLIZUMAB
     Indication: LUNG NEOPLASM MALIGNANT
     Route: 042
     Dates: start: 20190312, end: 20190514
  3. BISOGAMMA [Concomitant]
     Active Substance: BISOPROLOL FUMARATE
     Indication: HYPERTENSION
     Dosage: 1/2 TABL. DAILY
     Route: 048

REACTIONS (9)
  - Pneumonia [Fatal]
  - Dyspnoea [Fatal]
  - Pulmonary embolism [Fatal]
  - Chest pain [Fatal]
  - Pyrexia [Fatal]
  - Non-cardiogenic pulmonary oedema [Fatal]
  - Pleural effusion [Fatal]
  - Cough [Fatal]
  - Sputum purulent [Fatal]

NARRATIVE: CASE EVENT DATE: 20190524
